FAERS Safety Report 9355435 (Version 3)
Quarter: 2013Q3

REPORT INFORMATION
  Report Type: Spontaneous
  Country: JP (occurrence: JP)
  Receive Date: 20130619
  Receipt Date: 20130715
  Transmission Date: 20140515
  Serious: Yes (Hospitalization, Other)
  Sender: FDA-Public Use
  Company Number: JP-JNJFOC-20130610058

PATIENT
  Age: 85 Year
  Sex: Female
  Weight: 32 kg

DRUGS (11)
  1. TRAMCET [Suspect]
     Indication: PAIN
     Dosage: 1DF X 2 PER 1 DAY
     Route: 048
     Dates: start: 20130404, end: 20130424
  2. WARFARIN POTASSIUM [Interacting]
     Indication: ARRHYTHMIA
     Dosage: 1 PER 1 DAY
     Route: 048
     Dates: start: 20130625
  3. WARFARIN POTASSIUM [Interacting]
     Indication: ARRHYTHMIA
     Dosage: 1 PER 1 DAY
     Route: 048
     Dates: start: 20130611, end: 20130624
  4. WARFARIN POTASSIUM [Interacting]
     Indication: ARRHYTHMIA
     Dosage: 1.5 MG X 1 PER 1 DAY
     Route: 048
     Dates: start: 20130326, end: 20130410
  5. NOVAMIN [Suspect]
     Indication: PRODUCT USED FOR UNKNOWN INDICATION
     Dosage: 5 MG X 2 PER 1 DAY
     Route: 048
     Dates: start: 20130404, end: 20130410
  6. LOXONIN [Concomitant]
     Dosage: 60 MG X 1 PER 1 DAY
     Route: 048
  7. FORTEO [Concomitant]
     Dosage: 60 UG X 1 PER 1 DAY
     Route: 058
  8. PANTOSIN [Concomitant]
     Route: 048
  9. MUCOSTA [Concomitant]
     Dosage: 100 MG X 1 PER 1 DAY
     Route: 048
  10. MAGLAX [Concomitant]
     Route: 048
  11. YAKUBAN [Concomitant]
     Dosage: 40 MG X 1 PER 1 DAY
     Route: 062

REACTIONS (5)
  - Haemorrhage subcutaneous [Recovered/Resolved]
  - Drug interaction [Unknown]
  - Local swelling [Recovered/Resolved]
  - International normalised ratio increased [Recovered/Resolved]
  - Haemoglobin decreased [Unknown]
